FAERS Safety Report 16715782 (Version 2)
Quarter: 2019Q3

REPORT INFORMATION
  Report Type: Spontaneous
  Country: FR (occurrence: FR)
  Receive Date: 20190819
  Receipt Date: 20190826
  Transmission Date: 20191005
  Serious: Yes (Hospitalization)
  Sender: FDA-Public Use
  Company Number: FR-PFIZER INC-2019346465

PATIENT
  Age: 60 Year
  Sex: Male
  Weight: 114 kg

DRUGS (16)
  1. DOXORUBICIN HCL [Interacting]
     Active Substance: DOXORUBICIN HYDROCHLORIDE
     Indication: TRANSITIONAL CELL CARCINOMA
     Dosage: 60 MG, CYCLIC
     Route: 042
     Dates: start: 20190619, end: 20190718
  2. ONDANSETRON HCL [Interacting]
     Active Substance: ONDANSETRON HYDROCHLORIDE
     Indication: PROPHYLAXIS OF NAUSEA AND VOMITING
     Dosage: 1 DF, CYCLIC, (ON 1ST DAY)
     Route: 042
     Dates: start: 20190618, end: 20190717
  3. PERINDOPRIL [Interacting]
     Active Substance: PERINDOPRIL
     Indication: HYPERTENSION
     Dosage: 1 DF, 1X/DAY
     Route: 048
  4. GRANOCYTE [Concomitant]
     Active Substance: LENOGRASTIM
     Indication: FEBRILE NEUTROPENIA
     Dosage: 1 DF, CYCLIC, (FROM  4TH DAY TO 11TH DAY)
     Route: 058
     Dates: start: 20190621
  5. METHOTREXATE SODIUM. [Suspect]
     Active Substance: METHOTREXATE SODIUM
     Indication: TRANSITIONAL CELL CARCINOMA
     Dosage: 60 MG, CYCLIC
     Route: 042
     Dates: start: 20190618, end: 20190717
  6. EMEND [Interacting]
     Active Substance: APREPITANT
     Indication: PROPHYLAXIS OF NAUSEA AND VOMITING
     Dosage: 1 DF, CYCLIC, (125 MG 1ST DAY, 80 MG 2ND-3RD DAY)
     Route: 048
     Dates: start: 20190618, end: 20190719
  7. PREDNISONE. [Interacting]
     Active Substance: PREDNISONE
     Indication: PROPHYLAXIS OF NAUSEA AND VOMITING
     Dosage: 1 DF, CYCLIC, (FROM 3RD DAY TO 5TH DAY)
     Route: 048
     Dates: start: 20190620
  8. ALLOPURINOL. [Concomitant]
     Active Substance: ALLOPURINOL
     Indication: HYPERURICAEMIA
     Dosage: 200 MG, 1X/DAY (1-0-0)
     Route: 048
  9. METHYLPREDNISOLONE SODIUM SUCCINATE. [Suspect]
     Active Substance: METHYLPREDNISOLONE SODIUM SUCCINATE
     Indication: PROPHYLAXIS OF NAUSEA AND VOMITING
     Dosage: 1 DF, CYCLIC, (ON 2ND DAY)
     Route: 042
     Dates: start: 20190619, end: 20190718
  10. ALPRAZOLAM. [Concomitant]
     Active Substance: ALPRAZOLAM
     Indication: ANXIETY
     Dosage: 0.5 DF, AS NEEDED
     Route: 048
  11. VELBE [Suspect]
     Active Substance: VINBLASTINE SULFATE
     Indication: TRANSITIONAL CELL CARCINOMA
     Dosage: 6 MG, CYCLIC
     Route: 042
     Dates: start: 20190619, end: 20190718
  12. DOMPERIDONE [Concomitant]
     Active Substance: DOMPERIDONE
     Indication: PROPHYLAXIS OF NAUSEA AND VOMITING
     Dosage: 10 MG, AS NEEDED
     Route: 048
     Dates: start: 20190618
  13. CISPLATIN. [Suspect]
     Active Substance: CISPLATIN
     Indication: TRANSITIONAL CELL CARCINOMA
     Dosage: 140 MG, CYCLIC
     Route: 042
     Dates: start: 20190619, end: 20190718
  14. AMLODIPINE [Suspect]
     Active Substance: AMLODIPINE BESYLATE
     Indication: HYPERTENSION
     Dosage: 10 MG, 1X/DAY
     Route: 048
  15. EUPRESSYL [URAPIDIL] [Concomitant]
     Active Substance: URAPIDIL
     Indication: HYPERTENSION
     Dosage: 30 MG, 1X/DAY, (1-0-1)
     Route: 048
  16. DEROXAT [Interacting]
     Active Substance: PAROXETINE HYDROCHLORIDE
     Indication: DEPRESSION
     Dosage: 20 MG, 1X/DAY, (0-0-1)
     Route: 048
     Dates: start: 20190618

REACTIONS (2)
  - Atrial fibrillation [Recovering/Resolving]
  - Drug interaction [Unknown]

NARRATIVE: CASE EVENT DATE: 20190717
